FAERS Safety Report 14600918 (Version 2)
Quarter: 2018Q1

REPORT INFORMATION
  Report Type: Report from Study
  Country: US (occurrence: US)
  Receive Date: 20180305
  Receipt Date: 20180309
  Transmission Date: 20180509
  Serious: Yes (Hospitalization)
  Sender: FDA-Public Use
  Company Number: US-EISAI MEDICAL RESEARCH-EC-2018-036730

PATIENT
  Age: 16 Year
  Sex: Male
  Weight: 64.3 kg

DRUGS (6)
  1. LENVATINIB [Suspect]
     Active Substance: LENVATINIB
     Route: 048
     Dates: start: 20171229, end: 20180228
  2. LENVATINIB [Suspect]
     Active Substance: LENVATINIB
     Route: 048
     Dates: start: 20171201, end: 20171201
  3. LENVATINIB [Suspect]
     Active Substance: LENVATINIB
     Route: 048
     Dates: start: 20171202, end: 20171227
  4. ETOPOSIDE. [Suspect]
     Active Substance: ETOPOSIDE
     Indication: OSTEOSARCOMA
     Route: 041
     Dates: start: 20171128, end: 20180201
  5. IFOSFAMIDE. [Suspect]
     Active Substance: IFOSFAMIDE
     Indication: OSTEOSARCOMA
     Route: 041
     Dates: start: 20171128, end: 20180221
  6. LENVATINIB [Suspect]
     Active Substance: LENVATINIB
     Indication: OSTEOSARCOMA
     Route: 048
     Dates: start: 20171127, end: 20171130

REACTIONS (1)
  - Pneumothorax [Recovering/Resolving]

NARRATIVE: CASE EVENT DATE: 20180301
